FAERS Safety Report 6027311-0 (Version None)
Quarter: 2009Q1

REPORT INFORMATION
  Report Type: 
  Country: None (occurrence: None)
  Receive Date: 20090105
  Receipt Date: 20090102
  Transmission Date: 20090719
  Serious: Yes (Hospitalization)
  Sender: FDA-Public Use
  Company Number: A0762174A

PATIENT
  Age: 73 Year
  Sex: Female
  Weight: 70.3 kg

DRUGS (6)
  1. ALKERAN [Suspect]
     Indication: MULTIPLE MYELOMA
     Dosage: 18MG PER DAY
     Route: 048
     Dates: start: 20080611, end: 20081121
  2. VELCADE [Suspect]
     Indication: MULTIPLE MYELOMA
     Dosage: 2.4MG PER DAY
     Route: 042
     Dates: start: 20080610, end: 20081125
  3. PREDNISONE TAB [Suspect]
     Indication: MULTIPLE MYELOMA
     Dosage: 120MG PER DAY
     Route: 048
     Dates: start: 20080610, end: 20081121
  4. GABAPENTIN [Suspect]
  5. ALPRAZOLAM [Concomitant]
  6. ALLOPURINOL [Concomitant]

REACTIONS (11)
  - ANAEMIA [None]
  - ASTHENIA [None]
  - DIZZINESS [None]
  - HYPERCHOLESTEROLAEMIA [None]
  - HYPOGLYCAEMIA [None]
  - HYPOKALAEMIA [None]
  - HYPOMAGNESAEMIA [None]
  - NEUTROPENIA [None]
  - PANCYTOPENIA [None]
  - RENAL FAILURE ACUTE [None]
  - THROMBOCYTOPENIA [None]
